FAERS Safety Report 10333286 (Version 1)
Quarter: 2014Q3

REPORT INFORMATION
  Report Type: Spontaneous
  Country: US (occurrence: US)
  Receive Date: 20140722
  Receipt Date: 20140722
  Transmission Date: 20150326
  Serious: No
  Sender: FDA-Public Use
  Company Number: US-GILEAD-2014-0109611

PATIENT
  Age: 71 Year
  Sex: Female

DRUGS (21)
  1. LEVOTHYROXINE [Concomitant]
     Active Substance: LEVOTHYROXINE
  2. IRON [Concomitant]
     Active Substance: IRON
  3. LETAIRIS [Suspect]
     Active Substance: AMBRISENTAN
     Indication: PULMONARY ARTERIAL HYPERTENSION
     Route: 065
     Dates: start: 20140630, end: 20140703
  4. FLOVENT [Concomitant]
     Active Substance: FLUTICASONE PROPIONATE
  5. NORVASC [Concomitant]
     Active Substance: AMLODIPINE BESYLATE
  6. LOSARTAN [Concomitant]
     Active Substance: LOSARTAN
  7. FLONASE                            /00908302/ [Concomitant]
  8. VITAMIN B12 NOS [Concomitant]
  9. SPIRIVA [Concomitant]
     Active Substance: TIOTROPIUM BROMIDE MONOHYDRATE
  10. HYDROXYCHLOROQUINE [Concomitant]
     Active Substance: HYDROXYCHLOROQUINE
  11. FUROSEMIDE. [Concomitant]
     Active Substance: FUROSEMIDE
  12. TIKOSYN [Concomitant]
     Active Substance: DOFETILIDE
  13. WARFARIN [Concomitant]
     Active Substance: WARFARIN
  14. OMEPRAZOLE. [Concomitant]
     Active Substance: OMEPRAZOLE
  15. SPIRONOLACTONE. [Concomitant]
     Active Substance: SPIRONOLACTONE
  16. METOPROLOL [Concomitant]
     Active Substance: METOPROLOL
  17. VITAMIN C [Concomitant]
     Active Substance: ASCORBIC ACID
  18. HYDROCODONE [Concomitant]
     Active Substance: HYDROCODONE
  19. XOPENEX [Concomitant]
     Active Substance: LEVALBUTEROL HYDROCHLORIDE
  20. ASPIRIN 81 [Concomitant]
  21. GLIPIZIDE. [Concomitant]
     Active Substance: GLIPIZIDE

REACTIONS (1)
  - Wheezing [Recovered/Resolved]

NARRATIVE: CASE EVENT DATE: 20140630
